FAERS Safety Report 9347409 (Version 1)
Quarter: 2013Q2

REPORT INFORMATION
  Report Type: Spontaneous
  Country: GB (occurrence: GB)
  Receive Date: 20130613
  Receipt Date: 20130613
  Transmission Date: 20140414
  Serious: Yes (Disabling, Other)
  Sender: FDA-Public Use
  Company Number: GB-MYLANLABS-2013S1012029

PATIENT
  Sex: Male

DRUGS (1)
  1. FLUOXETINE [Suspect]
     Indication: PRODUCT USED FOR UNKNOWN INDICATION
     Route: 048
     Dates: start: 201304, end: 201304

REACTIONS (3)
  - Speech disorder [Unknown]
  - Cerebrovascular accident [Unknown]
  - Tongue paralysis [Unknown]
